FAERS Safety Report 25638001 (Version 1)
Quarter: 2025Q3

REPORT INFORMATION
  Report Type: Report from Study
  Country: CA (occurrence: CA)
  Receive Date: 20250804
  Receipt Date: 20250804
  Transmission Date: 20251021
  Serious: Yes (Other)
  Sender: UCB
  Company Number: CA-UCBSA-2025047260

PATIENT

DRUGS (3)
  1. CERTOLIZUMAB PEGOL [Suspect]
     Active Substance: CERTOLIZUMAB PEGOL
     Indication: Ankylosing spondylitis
     Dosage: 400 MILLIGRAM, EV 2 WEEKS(QOW)
     Route: 064
     Dates: start: 20210709
  2. CERTOLIZUMAB PEGOL [Suspect]
     Active Substance: CERTOLIZUMAB PEGOL
     Dosage: 200 MILLIGRAM, EV 2 WEEKS(QOW)
     Route: 064
  3. CERTOLIZUMAB PEGOL [Suspect]
     Active Substance: CERTOLIZUMAB PEGOL
     Dosage: 200 MILLIGRAM, EV 2 WEEKS(QOW)
     Route: 064
     Dates: start: 20240923

REACTIONS (3)
  - Premature baby [Unknown]
  - Maternal exposure before pregnancy [Unknown]
  - Maternal exposure during pregnancy [Unknown]

NARRATIVE: CASE EVENT DATE: 20250101
